FAERS Safety Report 23488284 (Version 3)
Quarter: 2024Q2

REPORT INFORMATION
  Report Type: Report from Study
  Country: US (occurrence: US)
  Receive Date: 20240206
  Receipt Date: 20240416
  Transmission Date: 20240716
  Serious: Yes (Hospitalization)
  Sender: FDA-Public Use
  Company Number: US-TAKEDA-2023TUS117572

PATIENT
  Sex: Male

DRUGS (2)
  1. MARIBAVIR [Suspect]
     Active Substance: MARIBAVIR
     Indication: Cytomegalovirus infection
     Dosage: 400 MILLIGRAM, BID
     Route: 048
     Dates: start: 20240124
  2. MARIBAVIR [Suspect]
     Active Substance: MARIBAVIR
     Dosage: 1 DOSAGE FORM, QD
     Route: 048
     Dates: end: 20240321

REACTIONS (3)
  - Hospitalisation [Unknown]
  - Rash [Unknown]
  - Therapeutic response shortened [Unknown]
